FAERS Safety Report 16504215 (Version 2)
Quarter: 2019Q3

REPORT INFORMATION
  Report Type: Spontaneous
  Country: KR (occurrence: KR)
  Receive Date: 20190701
  Receipt Date: 20190708
  Transmission Date: 20191004
  Serious: Yes (Death, Hospitalization, Other)
  Sender: FDA-Public Use
  Company Number: KR-009507513-1906KOR001690

PATIENT
  Sex: Female

DRUGS (6)
  1. KEYTRUDA [Suspect]
     Active Substance: PEMBROLIZUMAB
     Dosage: QUANTITY: 4, DAYS: 1
     Dates: start: 20190529, end: 20190529
  2. SODIUM CHLORIDE. [Concomitant]
     Active Substance: SODIUM CHLORIDE
     Dosage: QUANTITY: 114, DAYS: 1
     Dates: start: 20190508, end: 20190604
  3. SODIUM CHLORIDE. [Concomitant]
     Active Substance: SODIUM CHLORIDE
     Dosage: QUANTITY: 1, DAYS: 1
     Dates: start: 20190507, end: 20190507
  4. VISIPAQUE [Concomitant]
     Active Substance: IODIXANOL
     Dosage: QUANTITY: 2, DAYS: 1; 150 ML FOR CT
     Dates: start: 20190507, end: 20190513
  5. KEYTRUDA [Suspect]
     Active Substance: PEMBROLIZUMAB
     Indication: OVARIAN CANCER
     Dosage: QUANTITY: 2, DAYS: 1
     Dates: start: 20190508, end: 20190508
  6. MACPERAN [Concomitant]
     Active Substance: METOCLOPRAMIDE HYDROCHLORIDE
     Dosage: QUANTITY: 1, DAYS: 1
     Dates: start: 20190508, end: 20190508

REACTIONS (6)
  - Malignant neoplasm progression [Fatal]
  - Myofascial pain syndrome [Unknown]
  - Product use in unapproved indication [Unknown]
  - Adverse event [Unknown]
  - Oxygen therapy [Unknown]
  - Bladder catheterisation [Unknown]

NARRATIVE: CASE EVENT DATE: 2019
